FAERS Safety Report 10060387 (Version 1)
Quarter: 2014Q2

REPORT INFORMATION
  Report Type: Report from Study
  Country: MX (occurrence: MX)
  Receive Date: 20140404
  Receipt Date: 20140404
  Transmission Date: 20141212
  Serious: Yes (Hospitalization)
  Sender: FDA-Public Use
  Company Number: MX-TEVA-472749USA

PATIENT
  Age: 50 Year
  Sex: Male
  Weight: 88 kg

DRUGS (2)
  1. BENDAMUSTINE [Suspect]
     Indication: B-CELL LYMPHOMA
     Route: 042
     Dates: start: 20140218, end: 20140310
  2. METFORMIN [Concomitant]
     Indication: DIABETES MELLITUS
     Dosage: 850 (UNSPECIFIED UNITS);
     Route: 048
     Dates: start: 2003

REACTIONS (1)
  - Hyperosmolar state [Unknown]
